FAERS Safety Report 5078705-1 (Version None)
Quarter: 2006Q3

REPORT INFORMATION
  Report Type: 
  Country: None (occurrence: None)
  Receive Date: 20060808
  Receipt Date: 20060728
  Transmission Date: 20061208
  Serious: Yes (Hospitalization, Other)
  Sender: FDA-Public Use
  Company Number: 012385

PATIENT
  Age: 50 Year
  Sex: Female

DRUGS (14)
  1. PRIALT [Suspect]
     Indication: NEURALGIA
     Dosage: 0.1 UG, ONCE/HOUR, INTRATHECAL
     Route: 037
     Dates: start: 20060101, end: 20060101
  2. DURAGESIC-100 [Concomitant]
  3. ZOLOFT [Concomitant]
  4. LYRICA [Concomitant]
  5. PERCOCET           (OXYCODONE HYRDOCHLORIDE, PARACETAMOL) [Concomitant]
  6. BACLOFEN [Concomitant]
  7. BISACODYL (BISACODYL) [Concomitant]
  8. CLONIDINE [Concomitant]
  9. PREMARIN [Concomitant]
  10. PEPCID [Concomitant]
  11. MIRALAX [Concomitant]
  12. OXYBUTYNIN CHLORIDE [Concomitant]
  13. ZELNORM [Concomitant]
  14. MORPHINE [Concomitant]

REACTIONS (4)
  - FEELING ABNORMAL [None]
  - PAIN [None]
  - SELF INJURIOUS BEHAVIOUR [None]
  - SENSORY DISTURBANCE [None]
